FAERS Safety Report 9921200 (Version 1)
Quarter: 2014Q1

REPORT INFORMATION
  Report Type: Spontaneous
  Country: US (occurrence: None)
  Receive Date: 20140221
  Receipt Date: 20140221
  Transmission Date: 20141002
  Serious: Yes (Hospitalization, Disabling, Other)
  Sender: FDA-Public Use
  Company Number: None

PATIENT
  Age: 51 Year
  Sex: Female
  Weight: 51.71 kg

DRUGS (3)
  1. OMNIPAQUE [Suspect]
     Indication: SPINAL MYELOGRAM
     Dates: start: 20131108
  2. OMNIPAQUE [Suspect]
     Dates: start: 20131108
  3. TECHNETIUM [Suspect]
     Indication: BONE SCAN
     Dates: start: 20140102

REACTIONS (12)
  - Tremor [None]
  - Convulsion [None]
  - Tremor [None]
  - Nausea [None]
  - Confusional state [None]
  - Chills [None]
  - Pain [None]
  - Paraesthesia [None]
  - Hypoaesthesia [None]
  - Loss of consciousness [None]
  - Heart rate increased [None]
  - Blood pressure increased [None]
